FAERS Safety Report 7069266-6 (Version None)
Quarter: 2010Q4

REPORT INFORMATION
  Report Type: 
  Country: None (occurrence: None)
  Receive Date: 20101028
  Receipt Date: 20101018
  Transmission Date: 20110411
  Serious: Yes (Hospitalization)
  Sender: FDA-Public Use
  Company Number: CA-ABBOTT-10P-028-0679087-00

PATIENT
  Sex: Male

DRUGS (1)
  1. HUMIRA [Suspect]
     Indication: CROHN'S DISEASE
     Route: 058
     Dates: start: 20100727, end: 20100824

REACTIONS (6)
  - BLOOD GLUCOSE FLUCTUATION [None]
  - CROHN'S DISEASE [None]
  - CYSTITIS [None]
  - FREQUENT BOWEL MOVEMENTS [None]
  - PAIN [None]
  - URINARY TRACT INFECTION [None]
